FAERS Safety Report 21438409 (Version 1)
Quarter: 2022Q4

REPORT INFORMATION
  Report Type: Spontaneous
  Country: DE (occurrence: DE)
  Receive Date: 20221011
  Receipt Date: 20221011
  Transmission Date: 20230113
  Serious: Yes (Hospitalization)
  Sender: FDA-Public Use
  Company Number: DE-ADRED-08096-01

PATIENT
  Age: 79 Year
  Sex: Female

DRUGS (5)
  1. VENLAFAXINE [Suspect]
     Active Substance: VENLAFAXINE HYDROCHLORIDE
     Indication: Product used for unknown indication
     Dosage: 225 MG
     Route: 048
  2. TELMISARTAN [Suspect]
     Active Substance: TELMISARTAN
     Indication: Product used for unknown indication
     Dosage: 12.5\80 MG
     Route: 048
  3. LAVENDER OIL [Concomitant]
     Active Substance: LAVENDER OIL
     Indication: Product used for unknown indication
     Dosage: 80 MG
     Route: 048
  4. Carvedilol-1A Pharma 25mg [Concomitant]
     Indication: Product used for unknown indication
     Dosage: 25 MG, UNK
     Route: 048
  5. Fluvastatin AbZ 40mg [Concomitant]
     Indication: Product used for unknown indication
     Dosage: 40 MG, UNK
     Route: 048

REACTIONS (5)
  - Confusional state [Unknown]
  - Hypokalaemia [Unknown]
  - Dehydration [Unknown]
  - Headache [Unknown]
  - Hyponatraemia [Unknown]
